FAERS Safety Report 8298922-7 (Version None)
Quarter: 2012Q2

REPORT INFORMATION
  Report Type: 
  Country: None (occurrence: None)
  Receive Date: 20120419
  Receipt Date: 20120417
  Transmission Date: 20120825
  Serious: No
  Sender: FDA-Public Use
  Company Number: US-PFIZER INC-2012096313

PATIENT
  Sex: Female

DRUGS (2)
  1. LYRICA [Suspect]
     Dosage: 75 MG, DAILY
     Route: 048
     Dates: start: 20120405
  2. LYRICA [Suspect]
     Dosage: 75 MG, 2X/DAY
     Route: 048

REACTIONS (1)
  - MALAISE [None]
